APPROVED DRUG PRODUCT: GEFITINIB
Active Ingredient: GEFITINIB
Strength: 250MG
Dosage Form/Route: TABLET;ORAL
Application: A211591 | Product #001 | TE Code: AB
Applicant: QILU PHARMACEUTICAL HAINAN CO LTD
Approved: Feb 13, 2023 | RLD: No | RS: No | Type: RX